FAERS Safety Report 5491285-1 (Version None)
Quarter: 2007Q4

REPORT INFORMATION
  Report Type: 
  Country: None (occurrence: None)
  Receive Date: 20071017
  Receipt Date: 20071005
  Transmission Date: 20080405
  Serious: Yes (Other)
  Sender: FDA-Public Use
  Company Number: 2007BI019506

PATIENT
  Age: 44 Year
  Sex: Female

DRUGS (2)
  1. NATALIZUMAB (NATALIZUMAB) [Suspect]
     Indication: MULTIPLE SCLEROSIS
     Dosage: 300 MG; ; IV
     Route: 042
     Dates: start: 20070523, end: 20070801
  2. TRIOBE [Concomitant]

REACTIONS (1)
  - HERPES ZOSTER [None]
